FAERS Safety Report 9842416 (Version 1)
Quarter: 2014Q1

REPORT INFORMATION
  Report Type: Spontaneous
  Country: US (occurrence: US)
  Receive Date: 20140124
  Receipt Date: 20140124
  Transmission Date: 20141002
  Serious: No
  Sender: FDA-Public Use
  Company Number: US-GILEAD-2011-0038195

PATIENT
  Sex: Female

DRUGS (9)
  1. RANEXA [Suspect]
     Indication: ANGINA PECTORIS
     Route: 048
  2. TOPROL XL [Concomitant]
  3. NITRO PATCH [Concomitant]
  4. NITRO QUICK [Concomitant]
  5. LOVAZA [Concomitant]
  6. NEXIUM [Concomitant]
  7. SYNTHROID [Concomitant]
  8. HCTZ [Concomitant]
  9. ASPIRIN [Concomitant]

REACTIONS (1)
  - Rash generalised [Unknown]
